FAERS Safety Report 11265256 (Version 1)
Quarter: 2015Q3

REPORT INFORMATION
  Report Type: Spontaneous
  Country: BE (occurrence: BE)
  Receive Date: 20150713
  Receipt Date: 20150713
  Transmission Date: 20151125
  Serious: Yes (Hospitalization)
  Sender: FDA-Public Use
  Company Number: BE-TAKEDA-2015TEU005796

PATIENT
  Age: 67 Year
  Sex: Female

DRUGS (2)
  1. ACTOS [Suspect]
     Active Substance: PIOGLITAZONE HYDROCHLORIDE
     Indication: HYPERGLYCAEMIA
     Dosage: 15 MG, QD
     Route: 048
  2. ACTOS [Suspect]
     Active Substance: PIOGLITAZONE HYDROCHLORIDE
     Dosage: 30 MG, QD
     Route: 048

REACTIONS (4)
  - Generalised oedema [Recovered/Resolved]
  - Syncope [Recovered/Resolved]
  - Drug ineffective [Unknown]
  - Chest pain [Recovered/Resolved]
